FAERS Safety Report 18663513 (Version 1)
Quarter: 2020Q4

REPORT INFORMATION
  Report Type: Spontaneous
  Country: PL (occurrence: PL)
  Receive Date: 20201224
  Receipt Date: 20201224
  Transmission Date: 20210114
  Serious: Yes (Other)
  Sender: FDA-Public Use
  Company Number: PL-BAUSCH-BL-2020-036763

PATIENT
  Sex: Male

DRUGS (9)
  1. DIAZEPAM. [Suspect]
     Active Substance: DIAZEPAM
     Route: 065
     Dates: start: 20191005, end: 20191005
  2. GABAPENTIN. [Concomitant]
     Active Substance: GABAPENTIN
     Indication: EPILEPSY
  3. DIAZEPAM. [Suspect]
     Active Substance: DIAZEPAM
     Dosage: 40 TO 45 MG OF DIAZEPAM, TAKEN ONCE A WEEK, EVERY SATURDAY (MISUSE)
     Route: 065
     Dates: start: 2003
  4. DIAZEPAM. [Suspect]
     Active Substance: DIAZEPAM
     Dosage: TAPERED GRADUALLY (DECREASED BY 1-2 MG PER DAY UNTIL 5MG WAS REACHED)
     Route: 065
     Dates: start: 201910, end: 201910
  5. DIAZEPAM. [Suspect]
     Active Substance: DIAZEPAM
     Dosage: FOLLOWED BY A DECREASE OF 1 MG PER WEEK
     Route: 065
     Dates: start: 20191019, end: 201912
  6. DIAZEPAM. [Suspect]
     Active Substance: DIAZEPAM
     Route: 065
     Dates: start: 20191009
  7. LEVETIRACETAM. [Concomitant]
     Active Substance: LEVETIRACETAM
     Indication: EPILEPSY
  8. DIAZEPAM. [Suspect]
     Active Substance: DIAZEPAM
     Indication: EPILEPSY
     Route: 065
  9. CARBAMAZEPINE. [Concomitant]
     Active Substance: CARBAMAZEPINE
     Indication: EPILEPSY

REACTIONS (5)
  - Aura [Recovered/Resolved]
  - Withdrawal syndrome [Recovered/Resolved]
  - Intentional product misuse [Unknown]
  - Drug withdrawal convulsions [Recovered/Resolved]
  - Drug dependence [Unknown]

NARRATIVE: CASE EVENT DATE: 2003
